FAERS Safety Report 6637028-7 (Version None)
Quarter: 2010Q1

REPORT INFORMATION
  Report Type: 
  Country: None (occurrence: None)
  Receive Date: 20100316
  Receipt Date: 20100307
  Transmission Date: 20100710
  Serious: Yes (Other)
  Sender: FDA-Public Use
  Company Number: TW-ABBOTT-10P-153-0632311-00

PATIENT
  Age: 9 Year
  Sex: Female

DRUGS (1)
  1. LEUPLIN DEPOT [Suspect]
     Indication: PRECOCIOUS PUBERTY
     Dates: start: 20091001

REACTIONS (1)
  - INJECTION SITE HAEMATOMA [None]
